FAERS Safety Report 9664698 (Version 3)
Quarter: 2013Q4

REPORT INFORMATION
  Report Type: Spontaneous
  Country: US (occurrence: US)
  Receive Date: 20131101
  Receipt Date: 20131230
  Transmission Date: 20140711
  Serious: Yes (Disabling, Other)
  Sender: FDA-Public Use
  Company Number: US-CELGENEUS-163-22393-13093492

PATIENT
  Age: 63 Year
  Sex: Female

DRUGS (1)
  1. ISTODAX [Suspect]
     Indication: ANAPLASTIC LARGE CELL LYMPHOMA T- AND NULL-CELL TYPES REFRACTORY
     Route: 065
     Dates: start: 20130813, end: 20130827

REACTIONS (4)
  - Fall [Unknown]
  - Hip fracture [Unknown]
  - Anaplastic large cell lymphoma T- and null-cell types recurrent [Not Recovered/Not Resolved]
  - Underdose [Not Recovered/Not Resolved]
